FAERS Safety Report 6007653-5 (Version None)
Quarter: 2008Q4

REPORT INFORMATION
  Report Type: 
  Country: None (occurrence: None)
  Receive Date: 20081217
  Receipt Date: 20080430
  Transmission Date: 20090506
  Serious: No
  Sender: FDA-Public Use
  Company Number: US-ASTRAZENECA-2008UW06338

PATIENT
  Age: 69 Year
  Sex: Female
  Weight: 68 kg

DRUGS (9)
  1. CRESTOR [Suspect]
     Route: 048
     Dates: start: 20060101, end: 20080329
  2. CRESTOR [Suspect]
     Route: 048
  3. SYNVISC [Concomitant]
     Dosage: THREE INJECTIONS
  4. FOSAMAX [Concomitant]
  5. ESTRADIOL [Concomitant]
  6. ESTRADIOL [Concomitant]
  7. PROMETHIUM [Concomitant]
     Dosage: EVERY THREE WEEKS FOR TEN DAYS
  8. EFFEXOR [Concomitant]
     Dosage: DAILY
  9. CYTOMEL [Concomitant]

REACTIONS (5)
  - ARTHRALGIA [None]
  - JOINT SPRAIN [None]
  - MUSCULOSKELETAL PAIN [None]
  - MYALGIA [None]
  - SCIATICA [None]
